FAERS Safety Report 13133781 (Version 1)
Quarter: 2017Q1

REPORT INFORMATION
  Report Type: Spontaneous
  Country: US (occurrence: US)
  Receive Date: 20170119
  Receipt Date: 20170119
  Transmission Date: 20170428
  Serious: No
  Sender: FDA-Public Use
  Company Number: None

PATIENT
  Age: 38 Year
  Sex: Male

DRUGS (1)
  1. OXCARBAZEPINE 300MG [Suspect]
     Active Substance: OXCARBAZEPINE
     Dates: start: 20170110, end: 20170115

REACTIONS (2)
  - Rash erythematous [None]
  - Therapy cessation [None]

NARRATIVE: CASE EVENT DATE: 20170116
